FAERS Safety Report 12995028 (Version 1)
Quarter: 2016Q4

REPORT INFORMATION
  Report Type: Spontaneous
  Country: PT (occurrence: PT)
  Receive Date: 20161202
  Receipt Date: 20161202
  Transmission Date: 20170207
  Serious: Yes (Other)
  Sender: FDA-Public Use
  Company Number: PT-BAYER-2016-224854

PATIENT
  Age: 53 Year
  Sex: Male

DRUGS (2)
  1. ACETYLSALICYLIC ACID (} 100 MG) [Suspect]
     Active Substance: ASPIRIN
     Indication: CORONARY REVASCULARISATION
     Dosage: UNK
  2. CLOPIDOGREL [Interacting]
     Active Substance: CLOPIDOGREL BISULFATE
     Indication: CORONARY REVASCULARISATION
     Dosage: UNK

REACTIONS (5)
  - Haemoglobin decreased [None]
  - Upper gastrointestinal haemorrhage [None]
  - Hypotension [None]
  - Drug administration error [None]
  - Labelled drug-drug interaction medication error [None]
